FAERS Safety Report 14760507 (Version 3)
Quarter: 2020Q1

REPORT INFORMATION
  Report Type: Spontaneous
  Country: US (occurrence: US)
  Receive Date: 20180414
  Receipt Date: 20200211
  Transmission Date: 20200409
  Serious: Yes (Hospitalization, Other)
  Sender: FDA-Public Use
  Company Number: US-ASTRAZENECA-2018SE44331

PATIENT
  Age: 59 Year
  Sex: Female
  Weight: 97.5 kg

DRUGS (26)
  1. PRILOSEC [Suspect]
     Active Substance: OMEPRAZOLE MAGNESIUM
     Indication: ULCER
     Route: 048
     Dates: start: 20070101, end: 20120101
  2. PREVACID [Suspect]
     Active Substance: LANSOPRAZOLE
     Dosage: 40 MG DAILY
     Route: 065
     Dates: start: 198909, end: 201712
  3. PRILOSEC OTC [Suspect]
     Active Substance: OMEPRAZOLE MAGNESIUM
     Indication: ULCER
     Dosage: 20 MG DAILY
     Route: 048
     Dates: start: 198909, end: 201712
  4. PRILOSEC OTC [Suspect]
     Active Substance: OMEPRAZOLE MAGNESIUM
     Indication: ULCER
     Route: 048
     Dates: start: 200701, end: 201201
  5. TESSALON [Concomitant]
     Active Substance: BENZONATATE
  6. PRILOSEC [Suspect]
     Active Substance: OMEPRAZOLE MAGNESIUM
     Indication: GASTROOESOPHAGEAL REFLUX DISEASE
     Dosage: 40 MG DAILY
     Route: 048
     Dates: start: 198909, end: 201712
  7. IBUPROFEN. [Concomitant]
     Active Substance: IBUPROFEN
  8. LEVOTHYROXINE. [Concomitant]
     Active Substance: LEVOTHYROXINE
  9. PRILOSEC [Suspect]
     Active Substance: OMEPRAZOLE MAGNESIUM
     Indication: GASTROOESOPHAGEAL REFLUX DISEASE
     Route: 048
     Dates: start: 200701, end: 201201
  10. NEXIUM [Suspect]
     Active Substance: ESOMEPRAZOLE MAGNESIUM
     Dosage: 40 MG DAILY
     Route: 048
     Dates: start: 198909, end: 201712
  11. NEXIUM 24HR [Suspect]
     Active Substance: ESOMEPRAZOLE MAGNESIUM
     Dosage: 20 MG DAILY
     Route: 048
     Dates: start: 198909, end: 201712
  12. PRILOSEC [Suspect]
     Active Substance: OMEPRAZOLE MAGNESIUM
     Indication: ULCER
     Dosage: 40 MG DAILY
     Route: 048
     Dates: start: 198909, end: 201712
  13. PRILOSEC OTC [Suspect]
     Active Substance: OMEPRAZOLE MAGNESIUM
     Indication: GASTROOESOPHAGEAL REFLUX DISEASE
     Dosage: 20 MG DAILY
     Route: 048
     Dates: start: 198909, end: 201712
  14. PRILOSEC OTC [Suspect]
     Active Substance: OMEPRAZOLE MAGNESIUM
     Indication: ULCER
     Route: 048
     Dates: start: 20120101, end: 20161231
  15. DEXILANT [Suspect]
     Active Substance: DEXLANSOPRAZOLE
     Route: 065
     Dates: start: 198909, end: 201712
  16. CLONIDINE. [Concomitant]
     Active Substance: CLONIDINE
  17. PRILOSEC [Suspect]
     Active Substance: OMEPRAZOLE MAGNESIUM
     Indication: ULCER
     Route: 048
     Dates: start: 200701, end: 201201
  18. PRILOSEC [Suspect]
     Active Substance: OMEPRAZOLE MAGNESIUM
     Indication: GASTROOESOPHAGEAL REFLUX DISEASE
     Route: 048
     Dates: start: 20070101, end: 20120101
  19. PREVACID 24 HR [Suspect]
     Active Substance: LANSOPRAZOLE
     Dosage: 15 MG DAILY
     Route: 065
     Dates: start: 198909, end: 201712
  20. DIOVAN [Concomitant]
     Active Substance: VALSARTAN
  21. HYDROCHLOROTHIAZIDE. [Concomitant]
     Active Substance: HYDROCHLOROTHIAZIDE
  22. PRILOSEC OTC [Suspect]
     Active Substance: OMEPRAZOLE MAGNESIUM
     Indication: GASTROOESOPHAGEAL REFLUX DISEASE
     Route: 048
     Dates: start: 200701, end: 201201
  23. PRILOSEC OTC [Suspect]
     Active Substance: OMEPRAZOLE MAGNESIUM
     Indication: GASTROOESOPHAGEAL REFLUX DISEASE
     Route: 048
     Dates: start: 20120101, end: 20161231
  24. LISINOPRIL. [Concomitant]
     Active Substance: LISINOPRIL
  25. BENICAR [Concomitant]
     Active Substance: OLMESARTAN MEDOXOMIL
  26. PROTONIX [Suspect]
     Active Substance: PANTOPRAZOLE SODIUM
     Route: 065
     Dates: start: 198909, end: 201712

REACTIONS (3)
  - Renal failure [Recovered/Resolved]
  - Renal injury [Unknown]
  - Chronic kidney disease [Recovered/Resolved]

NARRATIVE: CASE EVENT DATE: 2014
